FAERS Safety Report 23692798 (Version 1)
Quarter: 2024Q2

REPORT INFORMATION
  Report Type: Spontaneous
  Country: CA (occurrence: CA)
  Receive Date: 20240401
  Receipt Date: 20240401
  Transmission Date: 20240716
  Serious: Yes (Other)
  Sender: FDA-Public Use
  Company Number: CA-VERTEX PHARMACEUTICALS-2024-005536

PATIENT
  Age: 33 Year
  Sex: Male

DRUGS (5)
  1. TRIKAFTA [Suspect]
     Active Substance: ELEXACAFTOR\IVACAFTOR\TEZACAFTOR
     Indication: Cystic fibrosis
     Dosage: 2 TABS (100MG ELEXA/ 50MG TEZA/ 75MG IVA) AM AND 1 TAB (150 MG IVA) PM
     Route: 048
     Dates: start: 202209
  2. TRIKAFTA [Suspect]
     Active Substance: ELEXACAFTOR\IVACAFTOR\TEZACAFTOR
     Dosage: 1 TAB AM (150 MG IVA) AND 2 TABS (100MG ELEXA/ 50MG TEZA/ 75MG IVA) PM
     Route: 048
     Dates: start: 202302
  3. TRIKAFTA [Suspect]
     Active Substance: ELEXACAFTOR\IVACAFTOR\TEZACAFTOR
     Dosage: 2 TABS (100MG ELEXA/ 50MG TEZA/ 75MG IVA) PM
     Route: 048
     Dates: start: 20230913, end: 202312
  4. TRIKAFTA [Suspect]
     Active Substance: ELEXACAFTOR\IVACAFTOR\TEZACAFTOR
     Dosage: 1 TAB (100MG ELEXA/ 50MG TEZA/ 75MG IVA) AM AND 1 TAB (150 MG IVA)PM
     Route: 048
  5. TRIKAFTA [Suspect]
     Active Substance: ELEXACAFTOR\IVACAFTOR\TEZACAFTOR
     Dosage: 1 TAB (100MG ELEXA/ 50MG TEZA/ 75MG IVA) AM
     Route: 048
     Dates: start: 20240214

REACTIONS (2)
  - Wisdom teeth removal [Recovered/Resolved]
  - Respiratory symptom [Recovered/Resolved]

NARRATIVE: CASE EVENT DATE: 20240101
